FAERS Safety Report 4964006-6 (Version None)
Quarter: 2006Q1

REPORT INFORMATION
  Report Type: 
  Country: None (occurrence: None)
  Receive Date: 20060201
  Receipt Date: 20051018
  Transmission Date: 20060701
  Serious: No
  Sender: FDA-Public Use
  Company Number: 2005PV004552

PATIENT
  Sex: Male

DRUGS (1)
  1. BYETTA [Suspect]
     Dosage: 5 MCG; SC
     Route: 058
     Dates: start: 20051114, end: 20051118

REACTIONS (1)
  - RASH GENERALISED [None]
